FAERS Safety Report 19656546 (Version 1)
Quarter: 2021Q3

REPORT INFORMATION
  Report Type: Report from Study
  Country: US (occurrence: US)
  Receive Date: 20210804
  Receipt Date: 20210804
  Transmission Date: 20211014
  Serious: Yes (Hospitalization)
  Sender: FDA-Public Use
  Company Number: US-CELGENEUS-USA-20210706781

PATIENT
  Age: 53 Year
  Sex: Female

DRUGS (1)
  1. BREYANZI [Suspect]
     Active Substance: LISOCABTAGENE MARALEUCEL
     Indication: NON-HODGKIN^S LYMPHOMA
     Dosage: 1 UNIT
     Route: 042
     Dates: start: 20210712, end: 20210712

REACTIONS (4)
  - Confusional state [Unknown]
  - Full blood count decreased [Unknown]
  - Body temperature increased [Unknown]
  - Platelet count decreased [Unknown]

NARRATIVE: CASE EVENT DATE: 20210717
